FAERS Safety Report 5272484-0 (Version None)
Quarter: 2007Q1

REPORT INFORMATION
  Report Type: 
  Country: None (occurrence: None)
  Receive Date: 20070322
  Receipt Date: 20060131
  Transmission Date: 20070707
  Serious: No
  Sender: FDA-Public Use
  Company Number: US-BRISTOL-MYERS SQUIBB COMPANY-13264247

PATIENT
  Sex: Female
  Weight: 69 kg

DRUGS (4)
  1. KENALOG [Suspect]
     Indication: EXOSTOSIS
     Route: 008
     Dates: start: 20060113, end: 20060113
  2. KENALOG [Suspect]
     Indication: INTERVERTEBRAL DISC PROTRUSION
     Route: 008
     Dates: start: 20060113, end: 20060113
  3. KENALOG [Suspect]
     Indication: SPINAL COLUMN STENOSIS
     Route: 008
     Dates: start: 20060113, end: 20060113
  4. KENALOG [Suspect]
     Indication: PAIN
     Route: 008
     Dates: start: 20060113, end: 20060113

REACTIONS (23)
  - ABDOMINAL DISTENSION [None]
  - BRONCHITIS [None]
  - CONSTIPATION [None]
  - CYST [None]
  - DIZZINESS [None]
  - FAECALOMA [None]
  - FATIGUE [None]
  - FEELING JITTERY [None]
  - HEADACHE [None]
  - HEART RATE INCREASED [None]
  - HYPERTRICHOSIS [None]
  - MENSTRUATION IRREGULAR [None]
  - MOOD SWINGS [None]
  - MUSCLE SPASMS [None]
  - MUSCULAR WEAKNESS [None]
  - NIGHT SWEATS [None]
  - PALPITATIONS [None]
  - PEAU D'ORANGE [None]
  - PILONIDAL CYST [None]
  - PNEUMONITIS [None]
  - SWELLING FACE [None]
  - VARICOSE VEIN [None]
  - WEIGHT INCREASED [None]
